FAERS Safety Report 6271958-3 (Version None)
Quarter: 2009Q3

REPORT INFORMATION
  Report Type: 
  Country: None (occurrence: None)
  Receive Date: 20090715
  Receipt Date: 20090702
  Transmission Date: 20100115
  Serious: Yes (Other)
  Sender: FDA-Public Use
  Company Number: 2009AL002499

PATIENT
  Age: 43 Year
  Sex: Female

DRUGS (6)
  1. DIGOXIN [Suspect]
     Dosage: PO
     Route: 048
  2. LINICA [Concomitant]
  3. COREG [Concomitant]
  4. CAPTOPRIL [Concomitant]
  5. ALDACTONE [Concomitant]
  6. PROTONIX [Concomitant]

REACTIONS (4)
  - BRONCHITIS [None]
  - ECONOMIC PROBLEM [None]
  - INTERSTITIAL LUNG DISEASE [None]
  - MULTIPLE INJURIES [None]
